FAERS Safety Report 4515205-9 (Version None)
Quarter: 2004Q4

REPORT INFORMATION
  Report Type: 
  Country: None (occurrence: None)
  Receive Date: 20041201
  Receipt Date: 20041111
  Transmission Date: 20050328
  Serious: Yes (Other)
  Sender: FDA-Public Use
  Company Number: JP-GLAXOSMITHKLINE-B0357307A

PATIENT
  Sex: Female

DRUGS (2)
  1. PAXIL [Suspect]
     Indication: DEPRESSION
     Dosage: 10MG PER DAY
     Route: 048
     Dates: start: 20040928, end: 20041001
  2. ALPRAZOLAM [Concomitant]
     Dosage: .4MG THREE TIMES PER DAY
     Route: 048

REACTIONS (5)
  - FALL [None]
  - FATIGUE [None]
  - FRACTURE [None]
  - HEADACHE [None]
  - SOMNOLENCE [None]
